FAERS Safety Report 6151843-8 (Version None)
Quarter: 2009Q2

REPORT INFORMATION
  Report Type: 
  Country: None (occurrence: None)
  Receive Date: 20090410
  Receipt Date: 20090331
  Transmission Date: 20091009
  Serious: Yes (Other)
  Sender: FDA-Public Use
  Company Number: IT-ABBOTT-09P-083-0563203-00

PATIENT
  Sex: Male

DRUGS (1)
  1. DEPAKOTE [Suspect]
     Indication: EPILEPSY
     Route: 048

REACTIONS (4)
  - AZOOSPERMIA [None]
  - BLOOD GONADOTROPHIN DECREASED [None]
  - BLOOD TESTOSTERONE DECREASED [None]
  - INFERTILITY MALE [None]
